FAERS Safety Report 22283181 (Version 2)
Quarter: 2025Q2

REPORT INFORMATION
  Report Type: Spontaneous
  Country: US (occurrence: US)
  Receive Date: 20230504
  Receipt Date: 20250528
  Transmission Date: 20250716
  Serious: No
  Sender: CIPLA
  Company Number: US-CIPLA LTD.-2023US01389

PATIENT

DRUGS (1)
  1. ALBUTEROL [Suspect]
     Active Substance: ALBUTEROL
     Indication: Product used for unknown indication
     Dates: start: 202302

REACTIONS (12)
  - Incorrect dose administered by device [Unknown]
  - Incorrect dose administered [Unknown]
  - Product delivery mechanism issue [Unknown]
  - Device physical property issue [Unknown]
  - Device operational issue [Unknown]
  - Device defective [Unknown]
  - Device ineffective [Unknown]
  - Drug ineffective [Unknown]
  - Product quality issue [Unknown]
  - Product substitution issue [Unknown]
  - Product dispensing issue [Unknown]
  - Device issue [Unknown]

NARRATIVE: CASE EVENT DATE: 20230201
